FAERS Safety Report 13899527 (Version 1)
Quarter: 2017Q3

REPORT INFORMATION
  Report Type: Spontaneous
  Country: US (occurrence: US)
  Receive Date: 20170823
  Receipt Date: 20170823
  Transmission Date: 20171127
  Serious: No
  Sender: FDA-Public Use
  Company Number: US-JAZZ-2017-US-008658

PATIENT
  Sex: Female

DRUGS (20)
  1. ETODOLAC. [Concomitant]
     Active Substance: ETODOLAC
  2. PRISTIQ EXTENDED-RELEASE [Concomitant]
     Active Substance: DESVENLAFAXINE SUCCINATE
  3. VITAMIN D                          /00107901/ [Concomitant]
     Active Substance: ERGOCALCIFEROL
  4. CLARITHROMYCIN. [Concomitant]
     Active Substance: CLARITHROMYCIN
  5. FIORINAL [Concomitant]
     Active Substance: ASPIRIN\BUTALBITAL\CAFFEINE
  6. LASIX [Concomitant]
     Active Substance: FUROSEMIDE
  7. SIMPONI [Concomitant]
     Active Substance: GOLIMUMAB
  8. WELLBUTRIN [Concomitant]
     Active Substance: BUPROPION HYDROCHLORIDE
  9. XYREM [Suspect]
     Active Substance: SODIUM OXYBATE
     Indication: NARCOLEPSY
     Dosage: 2.25G, BID
     Route: 048
     Dates: start: 201402, end: 201407
  10. XYREM [Suspect]
     Active Substance: SODIUM OXYBATE
     Dosage: 4.5G, BID
     Route: 048
     Dates: start: 201604, end: 201701
  11. LEVOTHYROXINE. [Concomitant]
     Active Substance: LEVOTHYROXINE
  12. METHOTREXATE. [Concomitant]
     Active Substance: METHOTREXATE
  13. XYREM [Suspect]
     Active Substance: SODIUM OXYBATE
     Dosage: DOSE ADJUSTMENTS
     Route: 048
     Dates: start: 2014, end: 2016
  14. ADDERALL [Concomitant]
     Active Substance: AMPHETAMINE ASPARTATE\AMPHETAMINE SULFATE\DEXTROAMPHETAMINE SACCHARATE\DEXTROAMPHETAMINE SULFATE
  15. FOLIC ACID. [Concomitant]
     Active Substance: FOLIC ACID
  16. LISINOPRIL. [Concomitant]
     Active Substance: LISINOPRIL
  17. LORTAB [Concomitant]
     Active Substance: ACETAMINOPHEN\HYDROCODONE BITARTRATE
  18. PROVIGIL [Concomitant]
     Active Substance: MODAFINIL
  19. OMEPRAZOLE. [Concomitant]
     Active Substance: OMEPRAZOLE
  20. PROMETHAZINE [Concomitant]
     Active Substance: PROMETHAZINE\PROMETHAZINE HYDROCHLORIDE

REACTIONS (3)
  - Weight decreased [Unknown]
  - Therapeutic response unexpected [Unknown]
  - Pre-existing condition improved [Unknown]
